FAERS Safety Report 16111806 (Version 1)
Quarter: 2019Q1

REPORT INFORMATION
  Report Type: Spontaneous
  Country: US (occurrence: US)
  Receive Date: 20190220
  Receipt Date: 20190220
  Transmission Date: 20190418
  Serious: Yes (Hospitalization)
  Sender: FDA-Public Use
  Company Number: None

PATIENT
  Age: 69 Year
  Sex: Male

DRUGS (1)
  1. LIRAGLUTIDE [Suspect]
     Active Substance: LIRAGLUTIDE
     Indication: DIABETES MELLITUS
     Dosage: ?          OTHER DOSE:1.8MG;?
     Route: 058
     Dates: start: 20171011, end: 20190112

REACTIONS (2)
  - Pancreatitis acute [None]
  - Duodenitis [None]

NARRATIVE: CASE EVENT DATE: 20190112
